FAERS Safety Report 5255541-4 (Version None)
Quarter: 2007Q1

REPORT INFORMATION
  Report Type: 
  Country: None (occurrence: None)
  Receive Date: 20070305
  Receipt Date: 20070227
  Transmission Date: 20070707
  Serious: Yes (Hospitalization)
  Sender: FDA-Public Use
  Company Number: US-BRISTOL-MYERS SQUIBB COMPANY-13694252

PATIENT
  Age: 35 Year
  Sex: Female
  Weight: 58 kg

DRUGS (3)
  1. BUSPAR [Suspect]
     Indication: DEPRESSION
     Dosage: DECR 15MG BID FOR 3 DAYS ON 2/22/07
     Dates: start: 20070101
  2. STRATTERA [Concomitant]
     Dosage: 40/MG MORNING + 25/MG IN EVENING
     Dates: start: 20070101
  3. ZOMIG [Concomitant]

REACTIONS (4)
  - DIZZINESS [None]
  - FAECALOMA [None]
  - HEADACHE [None]
  - NAUSEA [None]
